FAERS Safety Report 11237094 (Version 3)
Quarter: 2015Q3

REPORT INFORMATION
  Report Type: Spontaneous
  Country: US (occurrence: US)
  Receive Date: 20150703
  Receipt Date: 20150901
  Transmission Date: 20151125
  Serious: No
  Sender: FDA-Public Use
  Company Number: US-ASTRAZENECA-2015SE61949

PATIENT
  Age: 70 Year
  Sex: Female
  Weight: 82 kg

DRUGS (11)
  1. RAMIPRIL. [Suspect]
     Active Substance: RAMIPRIL
     Indication: BLOOD PRESSURE ABNORMAL
     Route: 048
     Dates: start: 2007
  2. NEXIUM [Suspect]
     Active Substance: ESOMEPRAZOLE MAGNESIUM
     Indication: ABDOMINAL DISCOMFORT
     Route: 048
     Dates: start: 2010
  3. METOPROLOL TARTRATE. [Suspect]
     Active Substance: METOPROLOL TARTRATE
     Indication: BLOOD PRESSURE ABNORMAL
     Route: 048
     Dates: start: 2014
  4. PREMARIN [Suspect]
     Active Substance: ESTROGENS, CONJUGATED
     Indication: HYSTERECTOMY
     Route: 048
     Dates: start: 1976
  5. PREMARIN [Suspect]
     Active Substance: ESTROGENS, CONJUGATED
     Indication: HOT FLUSH
     Route: 048
     Dates: start: 1976
  6. PREMARIN [Suspect]
     Active Substance: ESTROGENS, CONJUGATED
     Indication: NIGHT SWEATS
     Route: 048
     Dates: start: 1976
  7. POLYETHYLENE GLYCOL [Suspect]
     Active Substance: POLYETHYLENE GLYCOLS
     Indication: GASTROINTESTINAL DISORDER
     Route: 065
     Dates: start: 2012
  8. GABAPENTIN. [Suspect]
     Active Substance: GABAPENTIN
     Indication: MUSCLE SPASMS
     Route: 065
     Dates: start: 2014
  9. PREMARIN [Suspect]
     Active Substance: ESTROGENS, CONJUGATED
     Indication: HORMONE REPLACEMENT THERAPY
     Route: 048
     Dates: start: 1976
  10. PREMARIN [Suspect]
     Active Substance: ESTROGENS, CONJUGATED
     Indication: VULVOVAGINAL DRYNESS
     Route: 048
     Dates: start: 1976
  11. PREMARIN [Suspect]
     Active Substance: ESTROGENS, CONJUGATED
     Indication: NERVOUSNESS
     Route: 048
     Dates: start: 1976

REACTIONS (4)
  - Weight increased [Recovered/Resolved]
  - Memory impairment [Recovered/Resolved]
  - Nervousness [Recovered/Resolved]
  - Mental disorder [Recovered/Resolved]
